APPROVED DRUG PRODUCT: ITRACONAZOLE
Active Ingredient: ITRACONAZOLE
Strength: 100MG
Dosage Form/Route: CAPSULE;ORAL
Application: A076104 | Product #001 | TE Code: AB
Applicant: SANDOZ INC
Approved: May 28, 2004 | RLD: No | RS: No | Type: RX